FAERS Safety Report 11417668 (Version 1)
Quarter: 2015Q3

REPORT INFORMATION
  Report Type: Spontaneous
  Country: US (occurrence: US)
  Receive Date: 20150825
  Receipt Date: 20150825
  Transmission Date: 20151125
  Serious: Yes (Other)
  Sender: FDA-Public Use
  Company Number: US-B.I. PHARMACEUTICALS,INC./RIDGEFIELD-2015-BI-44679BP

PATIENT
  Age: 65 Year
  Sex: Female

DRUGS (15)
  1. ULTRAM [Concomitant]
     Active Substance: TRAMADOL HYDROCHLORIDE
     Indication: PAIN
     Dosage: DAILY DOSE: 50-100MG BID PRN
     Route: 048
     Dates: start: 20121203
  2. PERCOCET [Concomitant]
     Active Substance: ACETAMINOPHEN\OXYCODONE HYDROCHLORIDE
     Indication: PAIN
     Dosage: STRENGTH: 5/325MG; DAILY DOSE: 1 TAB EVERY 4-5HRS PRN
     Route: 048
     Dates: start: 20131226
  3. PROVENTIL HFA [Concomitant]
     Active Substance: ALBUTEROL SULFATE
     Indication: CHRONIC OBSTRUCTIVE PULMONARY DISEASE
     Dosage: STRENGTH: 6.7GM AER.W.ADAP
     Route: 048
     Dates: start: 20150603
  4. DECADRON [Concomitant]
     Active Substance: DEXAMETHASONE
     Indication: PRODUCT USED FOR UNKNOWN INDICATION
     Dosage: DAILY DOSE: 10MG AS DIRECTED
     Route: 048
     Dates: start: 20150608
  5. MIRALAX [Concomitant]
     Active Substance: POLYETHYLENE GLYCOL 3350
     Indication: CONSTIPATION
     Route: 048
     Dates: start: 20121203
  6. ZOFRAN [Concomitant]
     Active Substance: ONDANSETRON HYDROCHLORIDE
     Indication: NAUSEA
     Route: 048
     Dates: start: 20150313
  7. XGEVA [Concomitant]
     Active Substance: DENOSUMAB
     Indication: SUPPLEMENTATION THERAPY
     Dosage: 4 MG
     Route: 058
     Dates: start: 20150603
  8. OXYCONTIN [Concomitant]
     Active Substance: OXYCODONE HYDROCHLORIDE
     Indication: PAIN
     Dosage: 30 MG
     Route: 048
     Dates: start: 20150227
  9. ATIVAN [Concomitant]
     Active Substance: LORAZEPAM
     Indication: ANXIETY
     Dosage: 2 MG
     Route: 048
     Dates: start: 20150609
  10. ASCORBIC ACID. [Concomitant]
     Active Substance: ASCORBIC ACID
     Indication: SUPPLEMENTATION THERAPY
     Dosage: 1000 MG
     Route: 048
     Dates: start: 20100312
  11. UBIDECARENONE [Concomitant]
     Active Substance: UBIDECARENONE
     Indication: SUPPLEMENTATION THERAPY
     Dosage: 400 MG
     Route: 048
     Dates: start: 20121203
  12. MOBIC [Suspect]
     Active Substance: MELOXICAM
     Indication: PAIN
     Dosage: 15 MG
     Route: 048
     Dates: start: 20100312
  13. CALCIUM/VITAMIN D [Concomitant]
     Active Substance: CALCIUM\VITAMIN D
     Indication: SUPPLEMENTATION THERAPY
     Dosage: 2 ANZ
     Route: 048
     Dates: start: 20121203
  14. RED YEAST RICE [Concomitant]
     Active Substance: DIETARY SUPPLEMENT
     Indication: SUPPLEMENTATION THERAPY
     Route: 048
     Dates: start: 20121203
  15. METHYLCELLULOSE [Concomitant]
     Active Substance: METHYLCELLULOSES
     Indication: CONSTIPATION
     Dosage: 1000 MG
     Route: 048
     Dates: start: 20131030

REACTIONS (11)
  - Pneumonitis [Unknown]
  - Dyspnoea [Unknown]
  - Adenocarcinoma [Unknown]
  - Hepatic cancer metastatic [Unknown]
  - Fall [Unknown]
  - Disease progression [Unknown]
  - Thrombocytopenia [Unknown]
  - Anaemia [Unknown]
  - Bone marrow infiltration [Unknown]
  - Back injury [Unknown]
  - Dyspnoea exertional [Unknown]

NARRATIVE: CASE EVENT DATE: 20150313
